FAERS Safety Report 8340950-7 (Version None)
Quarter: 2012Q2

REPORT INFORMATION
  Report Type: 
  Country: None (occurrence: None)
  Receive Date: 20120507
  Receipt Date: 20120430
  Transmission Date: 20120825
  Serious: Yes (Death, Hospitalization, Other)
  Sender: FDA-Public Use
  Company Number: US-BAYER-2012-035955

PATIENT
  Age: 94 Year
  Sex: Male

DRUGS (13)
  1. LEVOTHYROXINE SODIUM [Concomitant]
  2. ALBUTEROL [Concomitant]
  3. ASPIRIN [Concomitant]
  4. CEFDINIR [Concomitant]
  5. OMEPRAZOLE [Concomitant]
  6. TRAMADOL HYDROCHLORIDE [Concomitant]
  7. NEXAVAR [Suspect]
     Indication: RENAL CELL CARCINOMA
     Dosage: 200 MG, QD
     Route: 048
     Dates: start: 20120131, end: 20120315
  8. COLCHICINE [Concomitant]
  9. LASIX [Concomitant]
  10. IRON [Concomitant]
  11. PULMICORT [Concomitant]
  12. QUESTRAN [Concomitant]
  13. DILTIAZEM [Concomitant]

REACTIONS (6)
  - METASTATIC RENAL CELL CARCINOMA [None]
  - DEHYDRATION [None]
  - RENAL FAILURE ACUTE [None]
  - DIARRHOEA [None]
  - ASTHENIA [None]
  - CLOSTRIDIUM DIFFICILE COLITIS [None]
